FAERS Safety Report 9115626 (Version 1)
Quarter: 2013Q1

REPORT INFORMATION
  Report Type: Spontaneous
  Country: US (occurrence: US)
  Receive Date: 20130225
  Receipt Date: 20130225
  Transmission Date: 20140127
  Serious: No
  Sender: FDA-Public Use
  Company Number: US-BRISTOL-MYERS SQUIBB COMPANY-16473126

PATIENT
  Age: 29 Year
  Sex: Female

DRUGS (1)
  1. KENALOG [Suspect]
     Dates: start: 20110902

REACTIONS (2)
  - Atrophy [Not Recovered/Not Resolved]
  - Hypoaesthesia [Not Recovered/Not Resolved]
